FAERS Safety Report 9557602 (Version 1)
Quarter: 2013Q3

REPORT INFORMATION
  Report Type: Spontaneous
  Country: US (occurrence: US)
  Receive Date: 20130926
  Receipt Date: 20130926
  Transmission Date: 20140515
  Serious: Yes (Hospitalization)
  Sender: FDA-Public Use
  Company Number: US-GLAXOSMITHKLINE-A1042863A

PATIENT
  Age: 59 Year
  Sex: Male

DRUGS (4)
  1. PROMACTA [Suspect]
     Indication: CHRONIC HEPATITIS C
     Dosage: 50MG PER DAY
     Route: 048
     Dates: start: 20130615
  2. PEGASYS [Concomitant]
  3. VICTRELIS [Concomitant]
  4. RIBAVIRIN [Concomitant]

REACTIONS (1)
  - Hospitalisation [Unknown]
